FAERS Safety Report 5507721-8 (Version None)
Quarter: 2007Q4

REPORT INFORMATION
  Report Type: 
  Country: None (occurrence: None)
  Receive Date: 20071105
  Receipt Date: 20071105
  Transmission Date: 20080405
  Serious: No
  Sender: FDA-Public Use
  Company Number: None

PATIENT
  Age: 58 Year
  Sex: Female
  Weight: 90.7194 kg

DRUGS (1)
  1. METRONIDAZOLE 500 MG PLIVA, INC. / CVS [Suspect]
     Indication: BACTERIAL INFECTION
     Dates: start: 20070918, end: 20070922

REACTIONS (3)
  - FATIGUE [None]
  - RASH PAPULAR [None]
  - STOMACH DISCOMFORT [None]
